FAERS Safety Report 5108912-0 (Version None)
Quarter: 2006Q3

REPORT INFORMATION
  Report Type: 
  Country: None (occurrence: None)
  Receive Date: 20060918
  Receipt Date: 20060831
  Transmission Date: 20061208
  Serious: Yes (Other)
  Sender: FDA-Public Use
  Company Number: US200609000075

PATIENT
  Sex: Male

DRUGS (2)
  1. HUMATROPE [Suspect]
     Indication: LIBIDO DECREASED
     Dosage: 3 CLICKS OF A 6MG CARTRIDGE
     Dates: start: 19990101
  2. HUMATROPEN [Concomitant]

REACTIONS (4)
  - ASTHENIA [None]
  - FATIGUE [None]
  - NEOPLASM PROGRESSION [None]
  - PROCEDURAL COMPLICATION [None]
